FAERS Safety Report 8796728 (Version 3)
Quarter: 2015Q2

REPORT INFORMATION
  Report Type: Report from Study
  Country: US (occurrence: US)
  Receive Date: 20120917
  Receipt Date: 20150417
  Transmission Date: 20150821
  Serious: Yes (Death, Hospitalization)
  Sender: FDA-Public Use
  Company Number: US-ROCHE-1129173

PATIENT
  Sex: Male
  Weight: 77.56 kg

DRUGS (8)
  1. ANZEMET [Concomitant]
     Active Substance: DOLASETRON MESYLATE
     Route: 065
  2. AVASTIN [Suspect]
     Active Substance: BEVACIZUMAB
     Indication: METASTASES TO LYMPH NODES
     Dosage: DOSE: 10MG/KG
     Route: 042
     Dates: start: 20090528, end: 20090618
  3. AVASTIN [Suspect]
     Active Substance: BEVACIZUMAB
     Indication: MALIGNANT MELANOMA
     Route: 042
     Dates: start: 20090406
  4. ABRAXANE [Concomitant]
     Active Substance: PACLITAXEL
     Route: 042
  5. ZOFRAN [Concomitant]
     Active Substance: ONDANSETRON HYDROCHLORIDE
     Route: 042
  6. DECADRON [Concomitant]
     Active Substance: DEXAMETHASONE
     Route: 042
  7. VICODIN [Concomitant]
     Active Substance: ACETAMINOPHEN\HYDROCODONE BITARTRATE
  8. COMPAZINE [Concomitant]
     Active Substance: PROCHLORPERAZINE MALEATE

REACTIONS (11)
  - Disease progression [Unknown]
  - Bloody discharge [Unknown]
  - Pulmonary oedema [Unknown]
  - Musculoskeletal pain [Unknown]
  - Decreased appetite [Recovered/Resolved]
  - Fall [Unknown]
  - Off label use [Unknown]
  - Death [Fatal]
  - Anaemia [Unknown]
  - Asthenia [Unknown]
  - Oedema peripheral [Unknown]
